FAERS Safety Report 5524293-2 (Version None)
Quarter: 2007Q4

REPORT INFORMATION
  Report Type: 
  Country: None (occurrence: None)
  Receive Date: 20071121
  Receipt Date: 20071113
  Transmission Date: 20080405
  Serious: Yes (Other)
  Sender: FDA-Public Use
  Company Number: JP-PFIZER INC-2007092716

PATIENT
  Age: 4 Year
  Sex: Female

DRUGS (9)
  1. ZITHROMAX [Suspect]
     Indication: UPPER RESPIRATORY TRACT INFLAMMATION
     Dosage: DAILY DOSE:100MG
     Route: 048
     Dates: start: 20071025, end: 20071028
  2. EXCEGRAN [Concomitant]
     Route: 048
  3. CLOBAZAM [Concomitant]
     Route: 048
  4. MAGNESIUM HYDROXIDE TAB [Concomitant]
     Route: 048
  5. MUCODYNE [Concomitant]
     Route: 048
  6. MUCOSOLVAN [Concomitant]
     Route: 048
  7. ASVERIN [Concomitant]
     Route: 048
  8. HOKUNALIN [Concomitant]
  9. ACETAMINOPHEN [Concomitant]

REACTIONS (4)
  - CONVULSION [None]
  - NEGATIVISM [None]
  - NERVOUSNESS [None]
  - PERSECUTORY DELUSION [None]
